FAERS Safety Report 12118063 (Version 1)
Quarter: 2016Q1

REPORT INFORMATION
  Report Type: Spontaneous
  Country: US (occurrence: None)
  Receive Date: 20160225
  Receipt Date: 20160225
  Transmission Date: 20160526
  Serious: Yes (Death)
  Sender: FDA-Public Use
  Company Number: None

PATIENT
  Age: 2 Year
  Sex: Male
  Weight: 10.6 kg

DRUGS (1)
  1. ALISERTIB [Suspect]
     Active Substance: ALISERTIB
     Indication: ATYPICAL TERATOID/RHABDOID TUMOUR OF CNS
     Route: 048
     Dates: start: 20160203, end: 20160209

REACTIONS (1)
  - Disease progression [None]

NARRATIVE: CASE EVENT DATE: 20160217
